FAERS Safety Report 14335582 (Version 1)
Quarter: 2017Q4

REPORT INFORMATION
  Report Type: Spontaneous
  Country: SE (occurrence: SE)
  Receive Date: 20171229
  Receipt Date: 20171229
  Transmission Date: 20180321
  Serious: Yes (Other)
  Sender: FDA-Public Use
  Company Number: SE-TEVA-2017-SE-836450

PATIENT
  Age: 59 Year
  Sex: Female

DRUGS (2)
  1. TROMBYL 75 MG TABLETT [Interacting]
     Active Substance: ASPIRIN
     Route: 065
     Dates: start: 20171123, end: 20171123
  2. DOXYFERM 100 MG TABLETT [Suspect]
     Active Substance: DOXYCYCLINE
     Route: 065
     Dates: start: 20171123

REACTIONS (2)
  - Drug interaction [Not Recovered/Not Resolved]
  - Urticaria [Not Recovered/Not Resolved]

NARRATIVE: CASE EVENT DATE: 20171123
